FAERS Safety Report 4594707-3 (Version None)
Quarter: 2005Q1

REPORT INFORMATION
  Report Type: 
  Country: None (occurrence: None)
  Receive Date: 20050301
  Receipt Date: 20050118
  Transmission Date: 20050727
  Serious: No
  Sender: FDA-Public Use
  Company Number: US-BRISTOL-MYERS SQUIBB COMPANY-12827796

PATIENT
  Age: 64 Year
  Sex: Male

DRUGS (2)
  1. ERBITUX [Suspect]
     Indication: COLORECTAL CANCER METASTATIC
     Dosage: INTERRUPTED.
     Route: 042
     Dates: start: 20050110
  2. IRINOTECAN HCL [Concomitant]

REACTIONS (1)
  - DERMATITIS ACNEIFORM [None]
